FAERS Safety Report 25443417 (Version 1)
Quarter: 2025Q2

REPORT INFORMATION
  Report Type: Spontaneous
  Country: CN (occurrence: CN)
  Receive Date: 20250617
  Receipt Date: 20250617
  Transmission Date: 20250716
  Serious: Yes (Hospitalization)
  Sender: AMGEN
  Company Number: CN-AMGEN-CHNSP2025114809

PATIENT
  Age: 41 Year
  Sex: Male

DRUGS (2)
  1. CINACALCET HYDROCHLORIDE [Suspect]
     Active Substance: CINACALCET HYDROCHLORIDE
     Indication: Hyperparathyroidism secondary
     Route: 048
  2. PARICALCITOL [Concomitant]
     Active Substance: PARICALCITOL

REACTIONS (8)
  - Pleural effusion [Unknown]
  - Pericardial effusion [Unknown]
  - Restrictive pulmonary disease [Unknown]
  - Parathyroid hyperplasia [Unknown]
  - Left ventricular dysfunction [Unknown]
  - Arteriosclerosis coronary artery [Unknown]
  - Aortic arteriosclerosis [Unknown]
  - Drug ineffective [Unknown]
